FAERS Safety Report 25306865 (Version 4)
Quarter: 2025Q3

REPORT INFORMATION
  Report Type: Report from Study
  Country: US (occurrence: US)
  Receive Date: 20250513
  Receipt Date: 20250715
  Transmission Date: 20251021
  Serious: Yes (Hospitalization, Other)
  Sender: TAKEDA
  Company Number: US-TAKEDA-2025TUS042510

PATIENT
  Sex: Female

DRUGS (4)
  1. TEDUGLUTIDE [Suspect]
     Active Substance: TEDUGLUTIDE
     Indication: Short-bowel syndrome
     Dosage: 0.25 MILLILITER, QD
     Dates: start: 202504, end: 20250501
  2. TEDUGLUTIDE [Suspect]
     Active Substance: TEDUGLUTIDE
     Dosage: 0.25 MILLILITER, QD
     Dates: end: 20250516
  3. TEDUGLUTIDE [Suspect]
     Active Substance: TEDUGLUTIDE
     Dosage: 0.14 MILLILITER, QD
     Dates: end: 20250524
  4. TEDUGLUTIDE [Suspect]
     Active Substance: TEDUGLUTIDE
     Dosage: 0.14 MILLILITER, QD
     Dates: start: 20250627

REACTIONS (10)
  - Faeces discoloured [Unknown]
  - Haematochezia [Unknown]
  - Vomiting [Unknown]
  - Stoma site thrombosis [Unknown]
  - Joint swelling [Unknown]
  - Oedema peripheral [Unknown]
  - Gastrointestinal stoma output increased [Unknown]
  - Hunger [Unknown]
  - Thirst [Unknown]
  - Headache [Unknown]
